FAERS Safety Report 18751676 (Version 1)
Quarter: 2021Q1

REPORT INFORMATION
  Report Type: Spontaneous
  Country: US (occurrence: US)
  Receive Date: 20210118
  Receipt Date: 20210118
  Transmission Date: 20210419
  Serious: Yes (Other)
  Sender: FDA-Public Use
  Company Number: US-SA-2021SA012030

PATIENT
  Age: 63 Year
  Sex: Female

DRUGS (1)
  1. ALLEGRA [Suspect]
     Active Substance: FEXOFENADINE HYDROCHLORIDE
     Dosage: 180 MG, QD
     Route: 065
     Dates: start: 20201019, end: 20201022

REACTIONS (3)
  - Drug ineffective [Unknown]
  - Rectal haemorrhage [Unknown]
  - Peripheral swelling [Unknown]
